FAERS Safety Report 13299524 (Version 3)
Quarter: 2019Q4

REPORT INFORMATION
  Report Type: Spontaneous
  Country: US (occurrence: US)
  Receive Date: 20170306
  Receipt Date: 20191021
  Transmission Date: 20200122
  Serious: Yes (Death, Other)
  Sender: FDA-Public Use
  Company Number: US-PFIZER INC-2017096292

PATIENT
  Age: 72 Year
  Sex: Male

DRUGS (14)
  1. VIAGRA [Suspect]
     Active Substance: SILDENAFIL CITRATE
     Dosage: UNK, 1X/DAY
     Dates: start: 20100716, end: 20110708
  2. VIAGRA [Suspect]
     Active Substance: SILDENAFIL CITRATE
     Dosage: UNK, 1X/DAY
     Dates: start: 20010223, end: 20060104
  3. METOPROLOL. [Concomitant]
     Active Substance: METOPROLOL
     Indication: HYPERTENSION
     Dosage: UNK, 1X/DAY
     Dates: start: 20060503, end: 20120307
  4. CIALIS [Suspect]
     Active Substance: TADALAFIL
     Indication: ERECTILE DYSFUNCTION
     Dosage: UNK, REGULARLY
     Route: 048
     Dates: start: 201107, end: 201108
  5. PANTOPRAZOLE [Concomitant]
     Active Substance: PANTOPRAZOLE
     Indication: GASTROOESOPHAGEAL REFLUX DISEASE
     Dosage: 40 MG, UNK
     Dates: start: 20110721, end: 20140823
  6. TAMSULOSIN HCL [Concomitant]
     Active Substance: TAMSULOSIN HYDROCHLORIDE
     Indication: BENIGN PROSTATIC HYPERPLASIA
     Dosage: 40 MG, UNK
     Dates: start: 20090823, end: 20130809
  7. TADALAFIL. [Concomitant]
     Active Substance: TADALAFIL
     Indication: ERECTILE DYSFUNCTION
     Dosage: 40 MG, UNK
     Dates: start: 20110721, end: 20120721
  8. VIAGRA [Suspect]
     Active Substance: SILDENAFIL CITRATE
     Indication: ERECTILE DYSFUNCTION
     Dosage: UNK, REGULARLY
     Route: 048
     Dates: start: 200009, end: 201402
  9. VIAGRA [Suspect]
     Active Substance: SILDENAFIL CITRATE
     Dosage: UNK, 1X/DAY
     Dates: start: 20120208, end: 20140226
  10. HYDROCORTISONE. [Concomitant]
     Active Substance: HYDROCORTISONE
     Indication: DRY SKIN
     Dosage: 2.5 MG, UNK
     Dates: start: 20100917, end: 20121212
  11. FLUOCINONIDE. [Concomitant]
     Active Substance: FLUOCINONIDE
     Indication: PRURITUS
     Dosage: 0.05 %, UNK
     Dates: start: 20080102, end: 20100402
  12. CIALIS [Suspect]
     Active Substance: TADALAFIL
     Dosage: UNK, 1X/DAY
     Dates: start: 20110721, end: 20110803
  13. LEVITRA [Concomitant]
     Active Substance: VARDENAFIL HYDROCHLORIDE
     Indication: ERECTILE DYSFUNCTION
     Dosage: UNK, 1X/DAY
     Dates: start: 20060222, end: 20100503
  14. TAMSULOSIN [Concomitant]
     Active Substance: TAMSULOSIN
     Indication: PROSTATOMEGALY
     Dosage: UNK, 1X/DAY
     Dates: start: 20060503, end: 20130809

REACTIONS (4)
  - Metastatic malignant melanoma [Fatal]
  - Metastases to lung [Fatal]
  - Malignant melanoma [Fatal]
  - Malignant melanoma in situ [Unknown]

NARRATIVE: CASE EVENT DATE: 20021008
